FAERS Safety Report 25434045 (Version 1)
Quarter: 2025Q2

REPORT INFORMATION
  Report Type: Spontaneous
  Country: BR (occurrence: BR)
  Receive Date: 20250613
  Receipt Date: 20250613
  Transmission Date: 20250716
  Serious: Yes (Hospitalization)
  Sender: CURRAX PHARMACEUTICALS
  Company Number: BR-CURRAX PHARMACEUTICALS LLC-BR-2025CUR001189

PATIENT
  Age: 35 Year
  Sex: Female

DRUGS (3)
  1. CONTRAVE [Suspect]
     Active Substance: BUPROPION HYDROCHLORIDE\NALTREXONE HYDROCHLORIDE
     Indication: Product used for unknown indication
     Route: 048
  2. CONTRAVE [Suspect]
     Active Substance: BUPROPION HYDROCHLORIDE\NALTREXONE HYDROCHLORIDE
     Route: 048
  3. CONTRAVE [Suspect]
     Active Substance: BUPROPION HYDROCHLORIDE\NALTREXONE HYDROCHLORIDE
     Dosage: (98 MILLIGRAM(S)), 4.0 DOSAGE FORM (2 DOSAGE FORM, 2 IN 1 DAY), 2 TABLETS IN THE MORNING AND 2 TABLE
     Route: 048
     Dates: start: 20250602

REACTIONS (5)
  - Hypoaesthesia [Unknown]
  - Dyspnoea [Unknown]
  - Anxiety [Unknown]
  - Dizziness [Unknown]
  - Product label issue [Unknown]

NARRATIVE: CASE EVENT DATE: 20250602
